FAERS Safety Report 5342557-2 (Version None)
Quarter: 2007Q2

REPORT INFORMATION
  Report Type: 
  Country: None (occurrence: None)
  Receive Date: 20070416
  Receipt Date: 20070228
  Transmission Date: 20071010
  Serious: No
  Sender: FDA-Public Use
  Company Number: 2007SP000726

PATIENT
  Age: 45 Year
  Sex: Female
  Weight: 68.0396 kg

DRUGS (2)
  1. LUNESTA [Suspect]
     Indication: INSOMNIA
     Dosage: 2 MG; ORAL
     Route: 048
  2. LUNESTA [Suspect]
     Indication: SCHIZOAFFECTIVE DISORDER
     Dosage: 2 MG; ORAL
     Route: 048

REACTIONS (1)
  - ABNORMAL DREAMS [None]
